FAERS Safety Report 5276405-6 (Version None)
Quarter: 2007Q1

REPORT INFORMATION
  Report Type: 
  Country: None (occurrence: None)
  Receive Date: 20061213
  Receipt Date: 20040727
  Transmission Date: 20070707
  Serious: No
  Sender: FDA-Public Use
  Company Number: 2004UW01147

PATIENT
  Age: 14 Year
  Sex: Female
  Weight: 55.3388 kg

DRUGS (1)
  1. SEROQUEL [Suspect]
     Indication: MOOD SWINGS
     Dosage: 25 MG PO
     Route: 048
     Dates: start: 19980101, end: 20040101

REACTIONS (3)
  - DIABETES MELLITUS INSULIN-DEPENDENT [None]
  - DIABETIC KETOACIDOSIS [None]
  - WEIGHT INCREASED [None]
